FAERS Safety Report 14946068 (Version 2)
Quarter: 2018Q2

REPORT INFORMATION
  Report Type: Spontaneous
  Country: JP (occurrence: JP)
  Receive Date: 20180529
  Receipt Date: 20180605
  Transmission Date: 20180711
  Serious: Yes (Other)
  Sender: FDA-Public Use
  Company Number: JP-STRIDES ARCOLAB LIMITED-2018SP004188

PATIENT

DRUGS (3)
  1. VANCOMYCIN [Suspect]
     Active Substance: VANCOMYCIN
     Indication: CLOSTRIDIUM DIFFICILE COLITIS
  2. VANCOMYCIN [Suspect]
     Active Substance: VANCOMYCIN
     Indication: PSEUDOMEMBRANOUS COLITIS
     Dosage: 125 MG, QID
     Route: 065
  3. METRONIDAZOLE. [Suspect]
     Active Substance: METRONIDAZOLE
     Indication: PSEUDOMEMBRANOUS COLITIS
     Dosage: 500 MG, TID
     Route: 065

REACTIONS (3)
  - Drug ineffective [Unknown]
  - Nausea [Recovered/Resolved]
  - Vomiting [Recovered/Resolved]
